FAERS Safety Report 16705322 (Version 1)
Quarter: 2019Q3

REPORT INFORMATION
  Report Type: Spontaneous
  Country: BR (occurrence: BR)
  Receive Date: 20190815
  Receipt Date: 20190815
  Transmission Date: 20191004
  Serious: Yes (Other)
  Sender: FDA-Public Use
  Company Number: BR-GLAXOSMITHKLINE-BR2019AMR145616

PATIENT
  Age: 76 Year
  Sex: Female

DRUGS (4)
  1. NASOCLEAN [SODIUM CHLORIDE] [Suspect]
     Active Substance: SODIUM CHLORIDE
     Indication: EAR DISORDER
  2. AVAMYS [Suspect]
     Active Substance: FLUTICASONE FUROATE
     Indication: NASAL DISORDER
     Dosage: 2 DF (JETS), QD, 120 DOSES
  3. AVAMYS [Suspect]
     Active Substance: FLUTICASONE FUROATE
     Indication: EAR DISORDER
  4. NASOCLEAN [SODIUM CHLORIDE] [Suspect]
     Active Substance: SODIUM CHLORIDE
     Indication: NASAL DISORDER
     Dosage: UNK UNK, QID

REACTIONS (8)
  - Nasal inflammation [Unknown]
  - Incorrect dose administered by device [Unknown]
  - Deafness [Unknown]
  - Inflammation [Unknown]
  - Ear discomfort [Unknown]
  - Ear infection [Unknown]
  - Product complaint [Unknown]
  - Product use issue [Unknown]
